FAERS Safety Report 17089574 (Version 1)
Quarter: 2019Q4

REPORT INFORMATION
  Report Type: Spontaneous
  Country: US (occurrence: US)
  Receive Date: 20191128
  Receipt Date: 20191128
  Transmission Date: 20200122
  Serious: Yes (Hospitalization, Other)
  Sender: FDA-Public Use
  Company Number: US-009507513-1911USA009580

PATIENT
  Age: 59 Year
  Sex: Female

DRUGS (6)
  1. LISINOPRIL. [Concomitant]
     Active Substance: LISINOPRIL
  2. OXYCODONE [Concomitant]
     Active Substance: OXYCODONE
  3. KEYTRUDA [Suspect]
     Active Substance: PEMBROLIZUMAB
     Dosage: UNK
     Route: 042
     Dates: start: 20190925
  4. GABAPENTIN. [Concomitant]
     Active Substance: GABAPENTIN
  5. DULOXETINE HYDROCHLORIDE. [Concomitant]
     Active Substance: DULOXETINE HYDROCHLORIDE
  6. KEYTRUDA [Suspect]
     Active Substance: PEMBROLIZUMAB
     Indication: OVARIAN CANCER METASTATIC
     Dosage: UNK
     Route: 042
     Dates: start: 20190821

REACTIONS (15)
  - Blindness [Recovering/Resolving]
  - Hallucination [Recovered/Resolved]
  - Oesophageal rupture [Unknown]
  - Poor quality sleep [Not Recovered/Not Resolved]
  - Feeling abnormal [Unknown]
  - Diabetes mellitus [Unknown]
  - Chills [Unknown]
  - Fear of death [Not Recovered/Not Resolved]
  - Haemoptysis [Recovered/Resolved]
  - Inappropriate schedule of product administration [Unknown]
  - Mouth haemorrhage [Not Recovered/Not Resolved]
  - Blood glucose decreased [Unknown]
  - Abdominal abscess [Unknown]
  - Syncope [Unknown]
  - Hyperthyroidism [Unknown]

NARRATIVE: CASE EVENT DATE: 20190826
